FAERS Safety Report 8851963 (Version 1)
Quarter: 2012Q4

REPORT INFORMATION
  Report Type: 
  Country: US (occurrence: ZA)
  Receive Date: 20121022
  Receipt Date: 20121022
  Transmission Date: 20130627
  Serious: Yes (Other)
  Sender: FDA-Public Use
  Company Number: ZA-BRISTOL-MYERS SQUIBB COMPANY-17046566

PATIENT

DRUGS (3)
  1. STOCRIN CAPS [Suspect]
     Indication: HIV INFECTION
     Route: 048
  2. STAVUDINE [Suspect]
     Indication: HIV INFECTION
     Route: 065
  3. LAMIVUDINE [Suspect]
     Indication: HIV INFECTION

REACTIONS (4)
  - Mitochondrial toxicity [Unknown]
  - Cardiomyopathy [Unknown]
  - Lactic acidosis [Unknown]
  - Left ventricular dysfunction [None]
